FAERS Safety Report 19475475 (Version 2)
Quarter: 2021Q4

REPORT INFORMATION
  Report Type: Spontaneous
  Country: GR (occurrence: CY)
  Receive Date: 20210629
  Receipt Date: 20211009
  Transmission Date: 20220303
  Serious: Yes (Hospitalization)
  Sender: FDA-Public Use
  Company Number: GR-BAYER-2021-166118

PATIENT
  Age: 74 Year
  Sex: Female

DRUGS (2)
  1. RIVAROXABAN [Suspect]
     Active Substance: RIVAROXABAN
     Indication: Atrial fibrillation
     Dosage: 20 MG, QD
     Route: 048
  2. RIVAROXABAN [Suspect]
     Active Substance: RIVAROXABAN
     Dosage: 15 MG
     Route: 048
     Dates: start: 202001, end: 202103

REACTIONS (2)
  - Refractory cytopenia with unilineage dysplasia [Recovered/Resolved]
  - Refractory cytopenia with unilineage dysplasia [Recovered/Resolved]

NARRATIVE: CASE EVENT DATE: 20210201
